FAERS Safety Report 10619028 (Version 1)
Quarter: 2014Q4

REPORT INFORMATION
  Report Type: Spontaneous
  Country: FR (occurrence: None)
  Receive Date: 20141126
  Receipt Date: 20141126
  Transmission Date: 20150529
  Serious: Yes (Hospitalization, Other)
  Sender: FDA-Public Use
  Company Number: ADR-2014-02233

PATIENT
  Age: 34 Year
  Sex: Female

DRUGS (4)
  1. LIORESAL [Suspect]
     Active Substance: BACLOFEN
     Dates: start: 20140819
  2. SEROPLEX (ESCITALOPRAM OXALATE) [Suspect]
     Active Substance: ESCITALOPRAM OXALATE
     Route: 048
     Dates: start: 20140505
  3. TERCIAN [Suspect]
     Active Substance: CYAMEMAZINE
  4. IMOVANE [Suspect]
     Active Substance: ZOPICLONE
     Route: 048
     Dates: start: 20140519

REACTIONS (9)
  - Wound necrosis [None]
  - Urinary incontinence [None]
  - Periorbital haemorrhage [None]
  - Loss of consciousness [None]
  - Craniocerebral injury [None]
  - Amnesia [None]
  - Faecal incontinence [None]
  - Fall [None]
  - Wound infection [None]

NARRATIVE: CASE EVENT DATE: 20140823
